FAERS Safety Report 18332658 (Version 2)
Quarter: 2020Q4

REPORT INFORMATION
  Report Type: Spontaneous
  Country: US (occurrence: US)
  Receive Date: 20200930
  Receipt Date: 20201112
  Transmission Date: 20210113
  Serious: No
  Sender: FDA-Public Use
  Company Number: US-ASTRAZENECA-2020SF24888

PATIENT
  Age: 61 Year
  Sex: Male
  Weight: 197 kg

DRUGS (1)
  1. LOKELMA [Suspect]
     Active Substance: SODIUM ZIRCONIUM CYCLOSILICATE
     Indication: HYPERKALAEMIA
     Dosage: 10 GM 1 PACKET AS DIRECT
     Route: 048
     Dates: start: 20200528, end: 20200921

REACTIONS (1)
  - Rash [Recovered/Resolved]
